FAERS Safety Report 9374557 (Version 2)
Quarter: 2013Q2

REPORT INFORMATION
  Report Type: Spontaneous
  Country: IN (occurrence: None)
  Receive Date: 20130624
  Receipt Date: 20130626
  Transmission Date: 20140414
  Serious: Yes (Other)
  Sender: FDA-Public Use
  Company Number: AUR-APL-2013-04957

PATIENT
  Age: 69 Year
  Sex: 0

DRUGS (5)
  1. ATENOLOL [Suspect]
     Indication: HYPERTENSION
     Dosage: (25 MG 1 IN 1 D)
  2. DICLOFENAC [Suspect]
     Indication: PRODUCT USED FOR UNKNOWN INDICATION
     Dosage: 50 +10 MG (3 IN 1 D)
  3. AMPICILLIN [Concomitant]
  4. RANITIDINE [Concomitant]
  5. FUROSEMIDE [Concomitant]

REACTIONS (5)
  - Renal failure acute [None]
  - Oedema peripheral [None]
  - Blood sodium decreased [None]
  - Blood potassium increased [None]
  - Inhibitory drug interaction [None]
